FAERS Safety Report 11207971 (Version 1)
Quarter: 2015Q2

REPORT INFORMATION
  Report Type: Report from Study
  Country: US (occurrence: US)
  Receive Date: 20150622
  Receipt Date: 20150622
  Transmission Date: 20150821
  Serious: No
  Sender: FDA-Public Use
  Company Number: US-ABBVIE-15P-163-1367891-00

PATIENT
  Age: 52 Year
  Sex: Male

DRUGS (1)
  1. VIEKIRA PAK [Suspect]
     Active Substance: DASABUVIR\OMBITASVIR\PARITAPREVIR\RITONAVIR
     Indication: HEPATITIS C
     Dosage: 2 PINK IN THE AM;1 BEIGE IN THE AM AND PM;WITH FOOD
     Route: 048
     Dates: start: 20150225

REACTIONS (2)
  - Cough [Unknown]
  - Insomnia [Unknown]
